FAERS Safety Report 16023204 (Version 3)
Quarter: 2019Q2

REPORT INFORMATION
  Report Type: Report from Study
  Country: IL (occurrence: IL)
  Receive Date: 20190301
  Receipt Date: 20190515
  Transmission Date: 20190711
  Serious: Yes (Hospitalization)
  Sender: FDA-Public Use
  Company Number: IL-INCYTE CORPORATION-2019IN001701

PATIENT

DRUGS (1)
  1. JAKAVI [Suspect]
     Active Substance: RUXOLITINIB
     Indication: MYELOFIBROSIS
     Dosage: 5 MG, BID
     Route: 048
     Dates: start: 20140302

REACTIONS (10)
  - White blood cell count increased [Recovering/Resolving]
  - Platelet count increased [Unknown]
  - Sleep disorder [Not Recovered/Not Resolved]
  - Haemoglobin decreased [Recovered/Resolved]
  - Muscle strain [Not Recovered/Not Resolved]
  - Abdominal pain [Recovering/Resolving]
  - Anal fissure [Recovering/Resolving]
  - Diverticulitis [Recovered/Resolved]
  - Skin discolouration [Recovered/Resolved]
  - Malaise [Not Recovered/Not Resolved]

NARRATIVE: CASE EVENT DATE: 20180830
